FAERS Safety Report 15084364 (Version 1)
Quarter: 2018Q2

REPORT INFORMATION
  Report Type: Spontaneous
  Country: FR (occurrence: FR)
  Receive Date: 20180628
  Receipt Date: 20180628
  Transmission Date: 20180711
  Serious: Yes (Hospitalization)
  Sender: FDA-Public Use
  Company Number: FR-TEVA-2018-FR-913450

PATIENT
  Age: 92 Year
  Sex: Male

DRUGS (8)
  1. LOSARTAN POTASSIQUE [Suspect]
     Active Substance: LOSARTAN POTASSIUM
     Indication: HYPERTENSION
     Dosage: 50 MILLIGRAM DAILY;
     Route: 048
     Dates: end: 20180505
  2. HAVLANE, COMPRIM? S?CABLE [Concomitant]
     Active Substance: LOPRAZOLAM MESILATE
     Route: 065
  3. SPASFON [Concomitant]
     Route: 065
  4. MACROGOLS [Concomitant]
     Route: 065
  5. ZOLPIDEM [Concomitant]
     Active Substance: ZOLPIDEM\ZOLPIDEM TARTRATE
     Route: 065
  6. PREVISCAN 20 MG, COMPRIM? S?CABLE [Suspect]
     Active Substance: FLUINDIONE
     Indication: PULMONARY EMBOLISM
     Dosage: 1.5 DOSAGE FORMS DAILY;
     Route: 048
     Dates: end: 20180503
  7. REPAGLINIDE. [Concomitant]
     Active Substance: REPAGLINIDE
     Route: 065
  8. UROREC [Concomitant]
     Active Substance: SILODOSIN
     Route: 065

REACTIONS (3)
  - Anaemia [Not Recovered/Not Resolved]
  - Haemorrhage [Recovered/Resolved]
  - Acute kidney injury [Recovering/Resolving]

NARRATIVE: CASE EVENT DATE: 20180503
